FAERS Safety Report 10638847 (Version 2)
Quarter: 2014Q4

REPORT INFORMATION
  Report Type: Spontaneous
  Country: US (occurrence: US)
  Receive Date: 20141208
  Receipt Date: 20141224
  Transmission Date: 20150529
  Serious: Yes (Other)
  Sender: FDA-Public Use
  Company Number: US-PFIZER INC-2014330722

PATIENT
  Age: 45 Year
  Sex: Male

DRUGS (5)
  1. BENEFIX [Suspect]
     Active Substance: COAGULATION FACTOR IX RECOMBINANT HUMAN\ISOPROPYL ALCOHOL
     Dosage: 3000 IU, 3 DAYS IN A ROW, THEN EVERY OTHER DAY)
     Dates: start: 20141124, end: 20141202
  2. BENEFIX [Suspect]
     Active Substance: COAGULATION FACTOR IX RECOMBINANT HUMAN\ISOPROPYL ALCOHOL
     Indication: POST PROCEDURAL HAEMORRHAGE
     Dosage: 3000 IU, 3 DAYS IN A ROW, THEN EVERY OTHER DAY)
     Dates: start: 20141124, end: 20141202
  3. BENEFIX [Suspect]
     Active Substance: COAGULATION FACTOR IX RECOMBINANT HUMAN\ISOPROPYL ALCOHOL
     Dosage: 3000 IU, 3 DAYS IN A ROW, THEN EVERY OTHER DAY)
     Dates: start: 20141124, end: 20141202
  4. BENEFIX [Suspect]
     Active Substance: COAGULATION FACTOR IX RECOMBINANT HUMAN\ISOPROPYL ALCOHOL
     Dosage: 3000 IU, 3 DAYS IN A ROW, THEN EVERY OTHER DAY)
     Dates: start: 20141124, end: 20141202
  5. BENEFIX [Suspect]
     Active Substance: COAGULATION FACTOR IX RECOMBINANT HUMAN\ISOPROPYL ALCOHOL
     Dosage: 3000 IU, 3 DAYS IN A ROW, THEN EVERY OTHER DAY)
     Dates: start: 20141124, end: 20141202

REACTIONS (2)
  - Tooth socket haemorrhage [Recovering/Resolving]
  - Loose tooth [Recovering/Resolving]
